FAERS Safety Report 7329681-X (Version None)
Quarter: 2011Q1

REPORT INFORMATION
  Report Type: 
  Country: None (occurrence: None)
  Receive Date: 20110303
  Receipt Date: 20110228
  Transmission Date: 20110831
  Serious: Yes (Other)
  Sender: FDA-Public Use
  Company Number: US-BAYER-2011-019296

PATIENT
  Sex: Female

DRUGS (1)
  1. YAZ [Suspect]
     Indication: PRODUCT USED FOR UNKNOWN INDICATION
     Dosage: UNK
     Route: 048
     Dates: start: 20070201, end: 20070401

REACTIONS (5)
  - PULMONARY EMBOLISM [None]
  - PAIN [None]
  - ANXIETY [None]
  - INJURY [None]
  - EMOTIONAL DISTRESS [None]
